FAERS Safety Report 4885442-2 (Version None)
Quarter: 2005Q4

REPORT INFORMATION
  Report Type: 
  Country: None (occurrence: None)
  Receive Date: 20051220
  Receipt Date: 20041214
  Transmission Date: 20060501
  Serious: Yes (Disabling)
  Sender: FDA-Public Use
  Company Number: HQWYE967815DEC04

PATIENT
  Age: 50 Year
  Sex: Female
  Weight: 83.99 kg

DRUGS (7)
  1. EFFEXOR XR [Suspect]
     Indication: DEPRESSION
     Dosage: ^ TAPERED UP TO 300 MGM OVER 1 MONTH ^ , ORAL; SEE IMAGE
     Route: 048
     Dates: start: 20040708, end: 20041001
  2. EFFEXOR XR [Suspect]
     Indication: DEPRESSION
     Dosage: ^ TAPERED UP TO 300 MGM OVER 1 MONTH ^ , ORAL; SEE IMAGE
     Route: 048
     Dates: start: 20041001, end: 20041101
  3. EFFEXOR XR [Suspect]
     Indication: DEPRESSION
     Dosage: ^ TAPERED UP TO 300 MGM OVER 1 MONTH ^ , ORAL; SEE IMAGE
     Route: 048
     Dates: start: 20041101, end: 20041101
  4. EFFEXOR XR [Suspect]
     Indication: DEPRESSION
     Dosage: ^ TAPERED UP TO 300 MGM OVER 1 MONTH ^ , ORAL; SEE IMAGE
     Route: 048
     Dates: start: 20041101, end: 20041205
  5. EFFEXOR XR [Suspect]
     Indication: DEPRESSION
     Dosage: ^ TAPERED UP TO 300 MGM OVER 1 MONTH ^ , ORAL; SEE IMAGE
     Route: 048
     Dates: end: 20041205
  6. CYMBALTA [Suspect]
     Dosage: ^ 60 MGM ^, ORAL; SEE IMAGE
     Route: 048
     Dates: end: 20041205
  7. INSULIN [Concomitant]

REACTIONS (7)
  - DECREASED APPETITE [None]
  - DIZZINESS [None]
  - DRUG INEFFECTIVE [None]
  - DRUG WITHDRAWAL SYNDROME [None]
  - HEADACHE [None]
  - HYPOGLYCAEMIA [None]
  - NAUSEA [None]
